FAERS Safety Report 25362040 (Version 1)
Quarter: 2025Q2

REPORT INFORMATION
  Report Type: Report from Study
  Country: NL (occurrence: NL)
  Receive Date: 20250527
  Receipt Date: 20250527
  Transmission Date: 20250717
  Serious: Yes (Hospitalization, Other)
  Sender: RANBAXY
  Company Number: NL-SUN PHARMACEUTICAL INDUSTRIES LTD-2025R1-508564

PATIENT
  Age: 91 Year
  Sex: Male

DRUGS (3)
  1. CLINDAMYCIN [Suspect]
     Active Substance: CLINDAMYCIN
     Indication: Product used for unknown indication
     Route: 065
  2. FLUCLOXACILLIN [Suspect]
     Active Substance: FLUCLOXACILLIN
     Indication: Product used for unknown indication
     Route: 065
  3. PANTOZOL [Suspect]
     Active Substance: PANTOPRAZOLE SODIUM
     Indication: Product used for unknown indication
     Route: 065

REACTIONS (1)
  - Toxic epidermal necrolysis [Unknown]
